FAERS Safety Report 6257028-9 (Version None)
Quarter: 2009Q3

REPORT INFORMATION
  Report Type: 
  Country: None (occurrence: None)
  Receive Date: 20090706
  Receipt Date: 20090623
  Transmission Date: 20100115
  Serious: Yes (Other)
  Sender: FDA-Public Use
  Company Number: A0791595A

PATIENT
  Sex: Male

DRUGS (3)
  1. LAMICTAL [Suspect]
     Indication: EPILEPSY
     Dosage: 400MGD PER DAY
     Route: 048
     Dates: start: 20010101
  2. CLONAZEPAM [Concomitant]
  3. PHENOBARBITAL [Concomitant]

REACTIONS (2)
  - DRUG LEVEL DECREASED [None]
  - PETIT MAL EPILEPSY [None]
